FAERS Safety Report 6935017-6 (Version None)
Quarter: 2010Q3

REPORT INFORMATION
  Report Type: 
  Country: None (occurrence: None)
  Receive Date: 20100822
  Receipt Date: 20100809
  Transmission Date: 20110219
  Serious: Yes (Hospitalization)
  Sender: FDA-Public Use
  Company Number: PHFR2010GB02212

PATIENT

DRUGS (1)
  1. TASIGNA [Suspect]

REACTIONS (1)
  - DYSPHAGIA [None]
